FAERS Safety Report 20858093 (Version 7)
Quarter: 2025Q3

REPORT INFORMATION
  Report Type: Report from Study
  Country: US (occurrence: US)
  Receive Date: 20220521
  Receipt Date: 20250924
  Transmission Date: 20251020
  Serious: Yes (Other)
  Sender: TAKEDA
  Company Number: US-TAKEDA-2022TUS033008

PATIENT
  Age: 73 Year
  Sex: Female
  Weight: 97 kg

DRUGS (24)
  1. HUMAN IMMUNOGLOBULIN G\HYALURONIDASE RECOMBINANT HUMAN [Suspect]
     Active Substance: HUMAN IMMUNOGLOBULIN G\HYALURONIDASE (HUMAN RECOMBINANT)
     Indication: Immunodeficiency common variable
     Dosage: 40 GRAM, Q4WEEKS
  2. ACETAMINOPHEN [Concomitant]
     Active Substance: ACETAMINOPHEN
  3. DIPHENHYDRAMINE [Concomitant]
     Active Substance: DIPHENHYDRAMINE
  4. SODIUM CHLORIDE [Concomitant]
     Active Substance: SODIUM CHLORIDE
  5. EPINEPHRINE [Concomitant]
     Active Substance: EPINEPHRINE
  6. TERBINAFINE HYDROCHLORIDE [Concomitant]
     Active Substance: TERBINAFINE HYDROCHLORIDE
  7. NABUMETONE [Concomitant]
     Active Substance: NABUMETONE
  8. LEVOTHYROXINE [Concomitant]
     Active Substance: LEVOTHYROXINE
  9. MONTELUKAST SODIUM [Concomitant]
     Active Substance: MONTELUKAST SODIUM
  10. TRAZODONE [Concomitant]
     Active Substance: TRAZODONE HYDROCHLORIDE
  11. PENNSAID [Concomitant]
     Active Substance: DICLOFENAC SODIUM
  12. CALTRATE [Concomitant]
     Active Substance: CALCIUM CARBONATE
  13. PROTONIX [Concomitant]
     Active Substance: PANTOPRAZOLE SODIUM
  14. LOSARTAN [Concomitant]
     Active Substance: LOSARTAN
  15. BIOTIN [Concomitant]
     Active Substance: BIOTIN
  16. VITAMIN D3 [Concomitant]
     Active Substance: CHOLECALCIFEROL
  17. FOLIC ACID\IRON [Concomitant]
     Active Substance: FOLIC ACID\IRON
  18. MINOXIDIL [Concomitant]
     Active Substance: MINOXIDIL
  19. TRAMADOL [Concomitant]
     Active Substance: TRAMADOL
  20. AMITRIPTYLINE [Concomitant]
     Active Substance: AMITRIPTYLINE
  21. TRAZODONE HCL [Concomitant]
     Active Substance: TRAZODONE HYDROCHLORIDE
  22. Caltrate + d plus [Concomitant]
  23. DIPHENHYDRAMINE HYDROCHLORIDE [Concomitant]
     Active Substance: DIPHENHYDRAMINE HYDROCHLORIDE
  24. LOSARTAN POTASSIUM [Concomitant]
     Active Substance: LOSARTAN POTASSIUM

REACTIONS (11)
  - Thrombosis [Unknown]
  - Urinary tract infection [Recovered/Resolved]
  - Fungal infection [Unknown]
  - Gastroenteritis viral [Unknown]
  - Pain [Unknown]
  - COVID-19 [Unknown]
  - Infusion site rash [Recovered/Resolved]
  - Implant site infection [Unknown]
  - Sinusitis [Unknown]
  - Cough [Unknown]
  - Asthenia [Not Recovered/Not Resolved]

NARRATIVE: CASE EVENT DATE: 20220510
